FAERS Safety Report 11976296 (Version 1)
Quarter: 2016Q1

REPORT INFORMATION
  Report Type: Spontaneous
  Country: US (occurrence: None)
  Receive Date: 20160128
  Receipt Date: 20160128
  Transmission Date: 20160526
  Serious: Yes (Other)
  Sender: FDA-Public Use
  Company Number: None

PATIENT
  Age: 52 Year
  Sex: Female

DRUGS (2)
  1. HUMIRA [Suspect]
     Active Substance: ADALIMUMAB
     Indication: RHEUMATOID ARTHRITIS
     Dosage: DOSE FORM: INJECTABLE??FIRST SHIPPED ON 11/16/2015
     Route: 058
     Dates: start: 20151116
  2. HUMIRA [Suspect]
     Active Substance: ADALIMUMAB
     Indication: PSORIASIS
     Dosage: DOSE FORM: INJECTABLE??FIRST SHIPPED ON 11/16/2015
     Route: 058
     Dates: start: 20151116

REACTIONS (7)
  - Oropharyngeal pain [None]
  - Viral infection [None]
  - Vomiting [None]
  - Pyrexia [None]
  - Malaise [None]
  - Nausea [None]
  - Diarrhoea [None]

NARRATIVE: CASE EVENT DATE: 20160121
